FAERS Safety Report 7212671-5 (Version None)
Quarter: 2011Q1

REPORT INFORMATION
  Report Type: 
  Country: None (occurrence: None)
  Receive Date: 20110106
  Receipt Date: 20101231
  Transmission Date: 20110831
  Serious: Yes (Hospitalization)
  Sender: FDA-Public Use
  Company Number: CA-ABBOTT-10P-028-0691056-00

PATIENT
  Sex: Female
  Weight: 72.64 kg

DRUGS (30)
  1. NOVOLIN 70/30 [Concomitant]
     Indication: DIABETES MELLITUS
     Route: 058
     Dates: start: 20100801
  2. SENOKOT [Concomitant]
     Indication: CONSTIPATION PROPHYLAXIS
     Dates: start: 20000101
  3. OXYCOCETE [Concomitant]
     Indication: PAIN
     Route: 048
     Dates: start: 20100801
  4. FOSOVANCE [Concomitant]
     Indication: ARTHRITIS
     Dosage: 1 WEEK
     Route: 048
     Dates: start: 20080101
  5. MORPHINE [Suspect]
     Indication: PRODUCT USED FOR UNKNOWN INDICATION
  6. SALBUTOMOL [Concomitant]
     Indication: ASTHMA
     Dosage: 8/DAYS
     Route: 055
     Dates: start: 19900101
  7. FOLIC ACID [Concomitant]
     Indication: ARTHRITIS
     Dosage: 5 MG 6 WEEK
     Route: 048
     Dates: start: 20090101
  8. RABEPRAZOLE SODIUM [Concomitant]
     Indication: GASTROOESOPHAGEAL REFLUX DISEASE
     Route: 048
  9. ASPIRIN [Concomitant]
     Indication: ANTICOAGULANT THERAPY
     Dates: start: 20070101
  10. CLONAZEPAM [Concomitant]
     Indication: INSOMNIA
     Route: 048
     Dates: start: 20000101
  11. DOCUSATE SODIUM [Concomitant]
     Indication: CONSTIPATION PROPHYLAXIS
     Route: 048
     Dates: start: 20000101
  12. NASONEX [Concomitant]
     Indication: SINUS DISORDER
     Route: 055
     Dates: start: 20070101
  13. CALCIUM [Concomitant]
     Indication: OSTEOPOROSIS
     Dosage: 500 MH BID
     Route: 048
     Dates: start: 20000101
  14. ADVAIR [Concomitant]
     Indication: ASTHMA
     Route: 055
  15. METFORMIN HCL [Concomitant]
     Indication: DIABETES MELLITUS
     Route: 048
     Dates: start: 20060101
  16. DOMPERIDONE [Concomitant]
     Indication: GASTROOESOPHAGEAL REFLUX DISEASE
     Dosage: 10 MG OD 6 DAY
     Route: 048
     Dates: start: 20000101
  17. SPECTRUM GOLD [Concomitant]
     Indication: SUPPLEMENTATION THERAPY
     Route: 048
     Dates: start: 20050101
  18. FERROUS SULFATE [Concomitant]
     Indication: IRON DEFICIENCY
     Route: 048
     Dates: start: 20040101
  19. CARBIDOPA + LEVODOPA [Concomitant]
     Indication: PARKINSON'S DISEASE
     Route: 048
     Dates: start: 20070101
  20. PRAMIPEXOLE DIHYDROCHLORIDE [Concomitant]
     Indication: PARKINSON'S DISEASE
     Dosage: 0.25MG 9 DAY
     Route: 048
     Dates: start: 20070101
  21. ATORVASTATIN [Concomitant]
     Indication: BLOOD CHOLESTEROL
     Route: 048
     Dates: start: 20050101
  22. MICARDIS [Concomitant]
     Indication: BLOOD PRESSURE
     Route: 048
     Dates: start: 20050101
  23. SERTRALINE [Concomitant]
     Indication: ANTIDEPRESSANT THERAPY
     Route: 048
     Dates: start: 20050101
  24. VESICARE [Concomitant]
     Indication: URINARY RETENTION
     Route: 048
     Dates: start: 20101101
  25. CYANOCOBALAMIN [Concomitant]
     Indication: VITAMIN B12 DEFICIENCY
     Dosage: 1 ML 1 MONTH
     Route: 048
     Dates: start: 20000101
  26. METHOTREXATE [Concomitant]
     Indication: ARTHRITIS
     Route: 058
     Dates: start: 20090101
  27. FUROSEMIDE [Concomitant]
     Indication: FLUID RETENTION
     Route: 048
     Dates: start: 20000101
  28. HUMIRA [Suspect]
     Indication: RHEUMATOID ARTHRITIS
     Route: 058
     Dates: start: 20101205
  29. LEFLUNOMIDE [Concomitant]
     Indication: ARTHRITIS
     Route: 048
     Dates: start: 20100601
  30. SPIRIVA [Concomitant]
     Indication: ASTHMA
     Route: 055
     Dates: start: 20070101

REACTIONS (3)
  - ABDOMINAL PAIN UPPER [None]
  - COSTOCHONDRITIS [None]
  - CHEST PAIN [None]
